FAERS Safety Report 6841634-4 (Version None)
Quarter: 2010Q3

REPORT INFORMATION
  Report Type: 
  Country: None (occurrence: None)
  Receive Date: 20100714
  Receipt Date: 20070710
  Transmission Date: 20110219
  Serious: No
  Sender: FDA-Public Use
  Company Number: US-PFIZER INC-2007058661

PATIENT
  Sex: Female
  Weight: 91.4 kg

DRUGS (8)
  1. CHANTIX [Suspect]
     Indication: SMOKING CESSATION THERAPY
     Dates: start: 20070709
  2. ATENOLOL [Concomitant]
  3. HYDROCHLOROTHIAZIDE [Concomitant]
  4. PERCOCET [Concomitant]
  5. TRAZODONE HYDROCHLORIDE [Concomitant]
  6. FLUOXETINE HCL [Concomitant]
  7. POTASSIUM CHLORIDE [Concomitant]
  8. ONE-A-DAY [Concomitant]

REACTIONS (1)
  - HEADACHE [None]
